FAERS Safety Report 5153633-1 (Version None)
Quarter: 2006Q4

REPORT INFORMATION
  Report Type: 
  Country: None (occurrence: None)
  Receive Date: 20061114
  Receipt Date: 20061106
  Transmission Date: 20070319
  Serious: Yes (Death)
  Sender: FDA-Public Use
  Company Number: 2006AL003433

PATIENT
  Age: 50 Year
  Sex: Female

DRUGS (3)
  1. MIRTAZAPINE [Suspect]
     Indication: DEPRESSION
     Dosage: 15 MG;QD;PO
     Route: 048
     Dates: end: 20061003
  2. EXEMESTANE [Concomitant]
  3. CHEMOTHERAPY [Concomitant]

REACTIONS (3)
  - AGRANULOCYTOSIS [None]
  - LEUKOPENIA [None]
  - THROMBOCYTOPENIA [None]
